FAERS Safety Report 25166988 (Version 1)
Quarter: 2025Q2

REPORT INFORMATION
  Report Type: Spontaneous
  Country: US (occurrence: None)
  Receive Date: 20250404
  Receipt Date: 20250404
  Transmission Date: 20250717
  Serious: No
  Sender: FDA-CTU
  Company Number: None

PATIENT
  Age: 74 Year
  Sex: Male
  Weight: 81 kg

DRUGS (5)
  1. LEQVIO [Suspect]
     Active Substance: INCLISIRAN SODIUM
     Indication: Blood cholesterol increased
     Dates: start: 20250124, end: 20250324
  2. AMLODIPINE [Concomitant]
     Active Substance: AMLODIPINE BESYLATE
  3. VITAMIN C [Concomitant]
     Active Substance: ASCORBIC ACID
  4. COENZYME Q10 [Concomitant]
     Active Substance: DIETARY SUPPLEMENT\UBIDECARENONE
  5. ASPIRIN [Concomitant]
     Active Substance: ASPIRIN

REACTIONS (5)
  - Myalgia [None]
  - Dyspnoea [None]
  - Pain in extremity [None]
  - Pain in extremity [None]
  - Movement disorder [None]

NARRATIVE: CASE EVENT DATE: 20250325
